FAERS Safety Report 12569296 (Version 2)
Quarter: 2016Q3

REPORT INFORMATION
  Report Type: Spontaneous
  Country: US (occurrence: US)
  Receive Date: 20160719
  Receipt Date: 20160913
  Transmission Date: 20161109
  Serious: Yes (Hospitalization, Other)
  Sender: FDA-Public Use
  Company Number: US-JNJFOC-20160712020

PATIENT
  Age: 26 Year
  Sex: Male

DRUGS (1)
  1. PARACETAMOL [Suspect]
     Active Substance: ACETAMINOPHEN
     Indication: PRODUCT USED FOR UNKNOWN INDICATION
     Dosage: 100 TABLETS OF 500 MG ONCE.
     Route: 048

REACTIONS (5)
  - Suicide attempt [Recovered/Resolved]
  - Abdominal pain upper [Recovered/Resolved]
  - Liver injury [Recovered/Resolved]
  - Hepatic function abnormal [Recovered/Resolved]
  - Intentional overdose [Recovered/Resolved]
